FAERS Safety Report 15832702 (Version 1)
Quarter: 2019Q1

REPORT INFORMATION
  Report Type: Spontaneous
  Country: NL (occurrence: NL)
  Receive Date: 20190116
  Receipt Date: 20190116
  Transmission Date: 20190417
  Serious: Yes (Other)
  Sender: FDA-Public Use
  Company Number: NL-AUROBINDO-AUR-APL-2019-000147

PATIENT
  Age: 86 Year
  Sex: Female

DRUGS (1)
  1. OMEPRAZOL 40 MG GASTRO-RESISTANT CAPSULES [Suspect]
     Active Substance: OMEPRAZOLE
     Indication: GASTRIC DISORDER
     Dosage: 40 MILLIGRAM, ONCE A DAY (1.1 CAPSULE)
     Route: 048
     Dates: start: 20171129, end: 20171210

REACTIONS (1)
  - Polyneuropathy [Recovered/Resolved]

NARRATIVE: CASE EVENT DATE: 20171209
